FAERS Safety Report 7273348-3 (Version None)
Quarter: 2011Q1

REPORT INFORMATION
  Report Type: 
  Country: None (occurrence: None)
  Receive Date: 20110203
  Receipt Date: 20101025
  Transmission Date: 20110831
  Serious: No
  Sender: FDA-Public Use
  Company Number: US-ABBOTT-10P-163-0681235-00

PATIENT
  Age: 32 Year
  Sex: Female
  Weight: 63.56 kg

DRUGS (4)
  1. SYNTHROID [Suspect]
     Indication: HYPOTHYROIDISM
     Route: 048
     Dates: start: 20090601
  2. BENADRYL [Concomitant]
     Indication: SEASONAL ALLERGY
     Route: 048
  3. MULTI-VITAMIN [Concomitant]
     Indication: VITAMIN SUPPLEMENTATION
     Dosage: NATURE MADE BRAND TAKES AT NIGHT
     Route: 048
  4. PATANOL [Concomitant]
     Indication: SEASONAL ALLERGY
     Route: 047

REACTIONS (4)
  - INITIAL INSOMNIA [None]
  - NAUSEA [None]
  - ALOPECIA [None]
  - ABDOMINAL PAIN [None]
